FAERS Safety Report 7901938-0 (Version None)
Quarter: 2011Q4

REPORT INFORMATION
  Report Type: 
  Country: None (occurrence: None)
  Receive Date: 20111108
  Receipt Date: 20111028
  Transmission Date: 20120403
  Serious: Yes (Other)
  Sender: FDA-Public Use
  Company Number: US-BAYER-2011-106888

PATIENT
  Age: 20 Year
  Sex: Female
  Weight: 56.236 kg

DRUGS (10)
  1. PROTONIX [Concomitant]
  2. CALCIUM [Concomitant]
  3. GLUCOSAMINE [Concomitant]
  4. DROSPIRENONE AND ETHINYL ESTRADIOL [Suspect]
     Indication: CONTRACEPTION
     Dosage: UNK
     Route: 048
     Dates: start: 20090801, end: 20090901
  5. BIOTIN [Concomitant]
  6. YASMIN [Suspect]
     Indication: CONTRACEPTION
     Dosage: UNK
     Route: 048
     Dates: start: 20060101, end: 20080601
  7. ALLEGRA [Concomitant]
  8. FLONASE [Concomitant]
     Indication: MULTIPLE ALLERGIES
     Dosage: UNK UNK, BID
     Dates: start: 20070511
  9. PHENERGAN [Concomitant]
  10. FLOMAX [Concomitant]

REACTIONS (5)
  - CHOLECYSTITIS CHRONIC [None]
  - DISCOMFORT [None]
  - BILE OUTPUT [None]
  - GALLBLADDER DISORDER [None]
  - ABDOMINAL PAIN UPPER [None]
